FAERS Safety Report 7488237-9 (Version None)
Quarter: 2011Q2

REPORT INFORMATION
  Report Type: 
  Country: None (occurrence: None)
  Receive Date: 20110518
  Receipt Date: 20110509
  Transmission Date: 20111010
  Serious: Yes (Other)
  Sender: FDA-Public Use
  Company Number: PHHY2011NZ39846

PATIENT
  Sex: Female

DRUGS (2)
  1. GLEEVEC [Suspect]
     Indication: GASTROINTESTINAL STROMAL TUMOUR
     Route: 048
     Dates: start: 20071228
  2. GLEEVEC [Suspect]
     Dosage: 300 MG, UNK
     Route: 048
     Dates: end: 20080501

REACTIONS (8)
  - PERIORBITAL OEDEMA [None]
  - NEOPLASM MALIGNANT [None]
  - MIGRAINE [None]
  - PULMONARY MASS [None]
  - GASTRIC DISORDER [None]
  - SLEEP DISORDER [None]
  - DEPRESSION [None]
  - VOMITING [None]
